FAERS Safety Report 5399984-7 (Version None)
Quarter: 2007Q3

REPORT INFORMATION
  Report Type: 
  Country: None (occurrence: None)
  Receive Date: 20070727
  Receipt Date: 20070727
  Transmission Date: 20080115
  Serious: Yes (Other)
  Sender: FDA-Public Use
  Company Number: None

PATIENT
  Age: 27 Year
  Sex: Female
  Weight: 81.6475 kg

DRUGS (1)
  1. FEXOFENADINE HCL [Suspect]
     Indication: RHINITIS ALLERGIC
     Dosage: 180 MG -1 TABLET- ONCE PER DAY PO
     Route: 048
     Dates: start: 20070708, end: 20070720

REACTIONS (9)
  - DRUG INEFFECTIVE [None]
  - DYSPNOEA [None]
  - EYE PRURITUS [None]
  - NASAL CONGESTION [None]
  - OCULAR HYPERAEMIA [None]
  - PHARMACEUTICAL PRODUCT COMPLAINT [None]
  - SNEEZING [None]
  - THROAT IRRITATION [None]
  - URTICARIA [None]
